FAERS Safety Report 7221958-1 (Version None)
Quarter: 2011Q1

REPORT INFORMATION
  Report Type: 
  Country: None (occurrence: None)
  Receive Date: 20110112
  Receipt Date: 20110110
  Transmission Date: 20110831
  Serious: Yes (Hospitalization)
  Sender: FDA-Public Use
  Company Number: B0692784A

PATIENT
  Sex: Male

DRUGS (12)
  1. BUMEX [Concomitant]
     Route: 065
  2. PERFALGAN [Concomitant]
     Route: 065
  3. SINTROM [Concomitant]
     Dosage: .75TAB PER DAY
     Route: 048
  4. ODRIK [Concomitant]
     Route: 065
  5. HUMULIN R [Concomitant]
     Route: 065
  6. MORPHINE [Concomitant]
     Route: 065
  7. DIPRIVAN [Concomitant]
     Route: 065
     Dates: end: 20100521
  8. AUGMENTIN [Suspect]
     Indication: ENDOCARDITIS
     Dosage: 3G FOUR TIMES PER DAY
     Route: 042
     Dates: start: 20100517, end: 20100521
  9. INIPOMP [Concomitant]
     Route: 065
  10. EXACYL [Suspect]
     Indication: CARDIAC OPERATION
     Route: 065
     Dates: start: 20100521, end: 20100521
  11. HEPARIN [Concomitant]
     Route: 065
  12. AUGMENTIN '125' [Concomitant]
     Dosage: 3G PER DAY
     Route: 042
     Dates: start: 20100513, end: 20100516

REACTIONS (6)
  - CONVULSION [None]
  - CONFUSIONAL STATE [None]
  - DRUG PRESCRIBING ERROR [None]
  - MEDICATION ERROR [None]
  - OVERDOSE [None]
  - MOTOR DYSFUNCTION [None]
